FAERS Safety Report 12735071 (Version 3)
Quarter: 2018Q4

REPORT INFORMATION
  Report Type: Spontaneous
  Country: US (occurrence: US)
  Receive Date: 20160912
  Receipt Date: 20181105
  Transmission Date: 20190204
  Serious: Yes (Death, Hospitalization)
  Sender: FDA-Public Use
  Company Number: US-JNJFOC-20160728491

PATIENT
  Sex: Female
  Weight: 65.32 kg

DRUGS (2)
  1. XARELTO [Suspect]
     Active Substance: RIVAROXABAN
     Indication: DEEP VEIN THROMBOSIS
     Route: 048
     Dates: end: 20141104
  2. XARELTO [Suspect]
     Active Substance: RIVAROXABAN
     Indication: DEEP VEIN THROMBOSIS
     Route: 048
     Dates: start: 20140824

REACTIONS (5)
  - Gastrointestinal haemorrhage [Recovered/Resolved]
  - Arteriosclerosis [Fatal]
  - Azotaemia [Unknown]
  - Colitis ischaemic [Fatal]
  - Lactic acidosis [Unknown]
